FAERS Safety Report 5930252-8 (Version None)
Quarter: 2008Q4

REPORT INFORMATION
  Report Type: 
  Country: None (occurrence: None)
  Receive Date: 20081024
  Receipt Date: 20081021
  Transmission Date: 20090506
  Serious: Yes (Hospitalization)
  Sender: FDA-Public Use
  Company Number: US-GENENTECH-270198

PATIENT
  Sex: Male
  Weight: 85.714 kg

DRUGS (5)
  1. BEVACIZUMAB [Suspect]
     Indication: MALIGNANT MELANOMA
     Dosage: 15 MG/KG, Q3W
     Route: 042
     Dates: start: 20080729
  2. RAD001 [Suspect]
     Indication: MALIGNANT MELANOMA
     Dosage: 5 MG, QD
     Route: 048
     Dates: start: 20080729
  3. LIPITOR [Concomitant]
     Indication: BLOOD CHOLESTEROL INCREASED
     Dosage: 10 MG, QHS
     Dates: start: 20060101
  4. ASPIRIN [Concomitant]
     Indication: PROPHYLAXIS
     Dosage: 325 MG, QD
     Dates: start: 20060101
  5. NORVASC [Concomitant]
     Indication: HYPERTENSION
     Dosage: 5 MG, QHS
     Dates: start: 20080814

REACTIONS (1)
  - PYREXIA [None]
